FAERS Safety Report 9500635 (Version 1)
Quarter: 2013Q3

REPORT INFORMATION
  Report Type: Spontaneous
  Country: US (occurrence: US)
  Receive Date: 20130905
  Receipt Date: 20130905
  Transmission Date: 20140515
  Serious: Yes (Hospitalization, Other)
  Sender: FDA-Public Use
  Company Number: US-PFIZER INC-2013254819

PATIENT
  Age: 71 Year
  Sex: Female
  Weight: 73.02 kg

DRUGS (3)
  1. TOVIAZ [Suspect]
     Indication: URINARY INCONTINENCE
     Dosage: UNK, 2X/DAY
     Dates: start: 201307, end: 201307
  2. LOSARTAN [Concomitant]
     Indication: HYPERTENSION
     Dosage: 50 MG, 2X/DAY
  3. VERAPAMIL [Concomitant]
     Indication: HYPERTENSION
     Dosage: 140 MG, 2X/DAY

REACTIONS (1)
  - Myocardial infarction [Unknown]
